FAERS Safety Report 20689121 (Version 1)
Quarter: 2022Q2

REPORT INFORMATION
  Report Type: Spontaneous
  Country: CZ (occurrence: CZ)
  Receive Date: 20220408
  Receipt Date: 20220408
  Transmission Date: 20220720
  Serious: Yes (Life-Threatening, Hospitalization, Other)
  Sender: FDA-Public Use
  Company Number: None

PATIENT
  Age: 90 Year
  Sex: Female

DRUGS (2)
  1. METHOTREXATE [Suspect]
     Active Substance: METHOTREXATE
     Indication: Rheumatoid arthritis
     Dosage: ADMINISTERED ONCE A DAY INSTEAD OF ONCE A WEEK (SINCE 7.12.2021)
     Dates: start: 20211207, end: 20211224
  2. RIVAROXABAN [Concomitant]
     Active Substance: RIVAROXABAN
     Indication: Atrial fibrillation

REACTIONS (6)
  - Vasculitis [Recovered/Resolved]
  - Myelosuppression [Recovered/Resolved]
  - Product administration error [Unknown]
  - Rash [Recovered/Resolved]
  - Pancytopenia [Recovered/Resolved]
  - Oropharyngeal candidiasis [Recovered/Resolved]

NARRATIVE: CASE EVENT DATE: 20211207
